FAERS Safety Report 10073946 (Version 1)
Quarter: 2014Q2

REPORT INFORMATION
  Report Type: Spontaneous
  Country: US (occurrence: US)
  Receive Date: 20140411
  Receipt Date: 20140411
  Transmission Date: 20141212
  Serious: No
  Sender: FDA-Public Use
  Company Number: US-SA-2013SA108253

PATIENT
  Age: 33 Year
  Sex: Female

DRUGS (2)
  1. ALLEGRA D [Suspect]
     Indication: EYE PRURITUS
     Dosage: 150 MG/ 240 MG
     Route: 048
  2. ALLEGRA D [Suspect]
     Indication: NASAL DISCOMFORT
     Dosage: 150 MG/ 240 MG
     Route: 048

REACTIONS (2)
  - Therapeutic response decreased [Unknown]
  - Drug dose omission [Unknown]
